FAERS Safety Report 13910074 (Version 1)
Quarter: 2017Q3

REPORT INFORMATION
  Report Type: Spontaneous
  Country: US (occurrence: US)
  Receive Date: 20170828
  Receipt Date: 20170828
  Transmission Date: 20171127
  Serious: No
  Sender: FDA-Public Use
  Company Number: PHHY2007US03494

PATIENT
  Age: 23 Year
  Sex: Female

DRUGS (2)
  1. FLUVIRIN NOS [Suspect]
     Active Substance: INFLUENZA VIRUS VACCINE
     Route: 030
     Dates: start: 200712, end: 200712
  2. LAMISIL [Suspect]
     Active Substance: TERBINAFINE HYDROCHLORIDE
     Indication: PRODUCT USED FOR UNKNOWN INDICATION
     Route: 065

REACTIONS (2)
  - Rash [Not Recovered/Not Resolved]
  - Injection site reaction [Not Recovered/Not Resolved]

NARRATIVE: CASE EVENT DATE: 200712
